FAERS Safety Report 9526480 (Version 2)
Quarter: 2013Q3

REPORT INFORMATION
  Report Type: Spontaneous
  Country: US (occurrence: US)
  Receive Date: 20130916
  Receipt Date: 20130925
  Transmission Date: 20140515
  Serious: Yes (Death)
  Sender: FDA-Public Use
  Company Number: US-BAYER-2013-111732

PATIENT
  Sex: 0

DRUGS (1)
  1. XOFIGO [Suspect]

REACTIONS (1)
  - Death [Fatal]
